FAERS Safety Report 16218315 (Version 1)
Quarter: 2019Q2

REPORT INFORMATION
  Report Type: Spontaneous
  Country: US (occurrence: US)
  Receive Date: 20190419
  Receipt Date: 20190419
  Transmission Date: 20190711
  Serious: No
  Sender: FDA-Public Use
  Company Number: US-PHOTOCURE ASA-HX-PM-US-190100001

PATIENT
  Sex: Female

DRUGS (12)
  1. PROPOFOL. [Concomitant]
     Active Substance: PROPOFOL
  2. ZEMURON [Concomitant]
     Active Substance: ROCURONIUM BROMIDE
  3. FENTANYL. [Concomitant]
     Active Substance: FENTANYL
  4. CYSVIEW [Suspect]
     Active Substance: HEXAMINOLEVULINATE HYDROCHLORIDE
     Indication: CYSTOSCOPY
  5. LIDOCAINE. [Concomitant]
     Active Substance: LIDOCAINE
  6. ZOFRAN [Concomitant]
     Active Substance: ONDANSETRON HYDROCHLORIDE
  7. NEOSTIGMINE. [Concomitant]
     Active Substance: NEOSTIGMINE METHYLSULFATE
  8. ROBINUL [Concomitant]
     Active Substance: GLYCOPYRROLATE
  9. SUCCINYLCHOLINE [Concomitant]
     Active Substance: SUCCINYLCHOLINE
  10. DILAUDID [Concomitant]
     Active Substance: HYDROMORPHONE HYDROCHLORIDE
  11. VERSED [Concomitant]
     Active Substance: MIDAZOLAM HYDROCHLORIDE
  12. BENADRYL [Concomitant]
     Active Substance: DIPHENHYDRAMINE HYDROCHLORIDE

REACTIONS (3)
  - Hyperhidrosis [Unknown]
  - Rash [Unknown]
  - Myalgia [Unknown]

NARRATIVE: CASE EVENT DATE: 20190122
